FAERS Safety Report 16607976 (Version 1)
Quarter: 2019Q3

REPORT INFORMATION
  Report Type: Spontaneous
  Country: DE (occurrence: DE)
  Receive Date: 20190722
  Receipt Date: 20190722
  Transmission Date: 20191004
  Serious: Yes (Hospitalization)
  Sender: FDA-Public Use
  Company Number: DE-TEVA-2019-DE-1079781

PATIENT
  Age: 76 Year
  Sex: Male

DRUGS (13)
  1. TORASEMID [Concomitant]
     Active Substance: TORSEMIDE
     Dosage: 10 MG
  2. RISPERIDON [Concomitant]
     Active Substance: RISPERIDONE
     Dosage: 0.5 MILLIGRAM
  3. SYREA [Suspect]
     Active Substance: HYDROXYUREA
     Dosage: 500 MG
  4. MACROGOL [Concomitant]
     Active Substance: POLYETHYLENE GLYCOLS
  5. ASS 100 [Concomitant]
     Active Substance: ASPIRIN
     Dosage: 100 MG
  6. METOPROLOL. [Suspect]
     Active Substance: METOPROLOL
     Dosage: 23.75 MG
  7. METFORMIN [Concomitant]
     Active Substance: METFORMIN HYDROCHLORIDE
     Dosage: 1000 MG
  8. OXYGESIC [Concomitant]
     Active Substance: OXYCODONE
     Dosage: 10 MG
  9. FENTANYL. [Concomitant]
     Active Substance: FENTANYL
     Dosage: 75 ?G
  10. PLAVIX [Concomitant]
     Active Substance: CLOPIDOGREL BISULFATE
     Dosage: 10 MG
  11. DAFIRO HCT 5MG/160MG/25MG [Concomitant]
     Dosage: 5|160|12.5 MG
  12. PANTOPRAZOL [Concomitant]
     Active Substance: PANTOPRAZOLE SODIUM
     Dosage: 40 MG
  13. FOLSAEURE [Concomitant]
     Active Substance: FOLIC ACID

REACTIONS (2)
  - Peptic ulcer [Unknown]
  - Condition aggravated [Unknown]
